FAERS Safety Report 20190277 (Version 1)
Quarter: 2021Q4

REPORT INFORMATION
  Report Type: Spontaneous
  Country: None (occurrence: A1)
  Receive Date: 20211215
  Receipt Date: 20211215
  Transmission Date: 20220303
  Serious: Yes (Other)
  Sender: FDA-Public Use
  Company Number: A1-Acella Pharmaceuticals, LLC-2123075

PATIENT
  Age: 35 Year
  Sex: Male

DRUGS (4)
  1. GABAPENTIN [Suspect]
     Active Substance: GABAPENTIN
     Indication: Pain
     Route: 061
  2. KETAMINE HYDROCHLORIDE [Suspect]
     Active Substance: KETAMINE HYDROCHLORIDE
     Route: 061
  3. CLONIDINE [Suspect]
     Active Substance: CLONIDINE
     Route: 061
  4. LIDOCAINE [Suspect]
     Active Substance: LIDOCAINE
     Route: 061

REACTIONS (6)
  - Somnolence [Recovered/Resolved]
  - Hypotension [Recovered/Resolved]
  - Bradycardia [Recovered/Resolved]
  - Sinus bradycardia [Recovered/Resolved]
  - Depression [Recovered/Resolved]
  - Dysstasia [Recovered/Resolved]
